FAERS Safety Report 24234544 (Version 1)
Quarter: 2024Q3

REPORT INFORMATION
  Report Type: Spontaneous
  Country: IE (occurrence: IE)
  Receive Date: 20240821
  Receipt Date: 20240821
  Transmission Date: 20241017
  Serious: Yes (Other)
  Sender: PURDUE
  Company Number: IE-PURDUE-USA-2024-0311451

PATIENT
  Age: 59 Year
  Sex: Female

DRUGS (8)
  1. OXYCONTIN [Suspect]
     Active Substance: OXYCODONE HYDROCHLORIDE
     Indication: Product used for unknown indication
     Dosage: LOWEST DOSE
     Route: 048
  2. TRAMADOL [Concomitant]
     Active Substance: TRAMADOL\TRAMADOL HYDROCHLORIDE
     Indication: Product used for unknown indication
     Dosage: TAKEN ON LOWEST DOSE IF NECESSARY
     Route: 065
  3. UTROGESTAN [Concomitant]
     Active Substance: PROGESTERONE
     Indication: Hormone replacement therapy
     Dosage: 100 MILLIGRAM
     Route: 048
  4. ESTRADIOL [Concomitant]
     Active Substance: ESTRADIOL
     Indication: Hormone replacement therapy
     Dosage: 75 MILLIGRAM
     Route: 062
  5. IXPRIM [Concomitant]
     Active Substance: ACETAMINOPHEN\TRAMADOL HYDROCHLORIDE
     Indication: Pain
     Dosage: UNK
     Route: 048
  6. LERCANIDIPINE [Concomitant]
     Active Substance: LERCANIDIPINE
     Indication: Blood pressure measurement
     Dosage: 10 MILLIGRAM
     Route: 048
  7. IBUPROFEN [Concomitant]
     Active Substance: IBUPROFEN
     Indication: Product used for unknown indication
     Dosage: UNK
     Route: 065
  8. LEVOCETIRIZINE [Concomitant]
     Active Substance: LEVOCETIRIZINE
     Indication: Multiple allergies
     Dosage: 5 MILLIGRAM
     Route: 048

REACTIONS (1)
  - Hallucination, visual [Unknown]
